FAERS Safety Report 10758687 (Version 1)
Quarter: 2015Q1

REPORT INFORMATION
  Report Type: Report from Study
  Country: DE (occurrence: DE)
  Receive Date: 20150203
  Receipt Date: 20150203
  Transmission Date: 20150721
  Serious: Yes (Death, Hospitalization)
  Sender: FDA-Public Use
  Company Number: DE-CELGENE-DEU-2015014124

PATIENT
  Age: 74 Year
  Sex: Female
  Weight: 70 kg

DRUGS (11)
  1. DEXAMETHASONE. [Concomitant]
     Active Substance: DEXAMETHASONE
     Dosage: .4 MILLIGRAM
     Route: 065
     Dates: start: 20140715
  2. CANDESARTAN [Concomitant]
     Active Substance: CANDESARTAN
     Indication: HYPERTENSION
     Dosage: 32 MILLIGRAM
     Route: 048
     Dates: start: 2009, end: 20150105
  3. MCP [Concomitant]
     Active Substance: METOCLOPRAMIDE HYDROCHLORIDE
     Indication: NAUSEA
     Dosage: 30 MILLIGRAM
     Route: 048
     Dates: start: 20141103, end: 20150105
  4. POMALIDOMIDE [Suspect]
     Active Substance: POMALIDOMIDE
     Route: 048
     Dates: start: 20141219, end: 20150105
  5. GABAGAMMA [Concomitant]
     Indication: PRODUCT USED FOR UNKNOWN INDICATION
     Dosage: 900 MILLIGRAM
     Route: 048
     Dates: start: 2013, end: 20150105
  6. RANIDURA [Concomitant]
     Indication: DYSPEPSIA
     Dosage: 150 MILLIGRAM
     Route: 048
     Dates: start: 2014, end: 20150105
  7. POMALIDOMIDE [Suspect]
     Active Substance: POMALIDOMIDE
     Indication: PLASMA CELL MYELOMA
     Route: 048
     Dates: start: 20140616, end: 20140706
  8. MOXONIDINE [Concomitant]
     Active Substance: MOXONIDINE
     Indication: HYPERTENSION
     Route: 048
     Dates: start: 2009, end: 20150105
  9. METAMIZOL [Concomitant]
     Active Substance: METAMIZOLE SODIUM
     Indication: PAIN
     Dosage: 120 MILLIGRAM
     Route: 048
     Dates: start: 20141103, end: 20150105
  10. DEXAMETHASONE. [Concomitant]
     Active Substance: DEXAMETHASONE
     Indication: PLASMA CELL MYELOMA
     Route: 065
     Dates: start: 20140616
  11. FLUCONAZOLE. [Concomitant]
     Active Substance: FLUCONAZOLE
     Indication: FUNGAL INFECTION
     Dosage: 100 MILLIGRAM
     Route: 048
     Dates: start: 2014, end: 20150105

REACTIONS (1)
  - Death [Fatal]

NARRATIVE: CASE EVENT DATE: 20150105
